FAERS Safety Report 12136576 (Version 6)
Quarter: 2017Q2

REPORT INFORMATION
  Report Type: Report from Study
  Country: US (occurrence: US)
  Receive Date: 20160302
  Receipt Date: 20170531
  Transmission Date: 20170829
  Serious: Yes (Hospitalization, Other)
  Sender: FDA-Public Use
  Company Number: PHHO2015US017965

PATIENT
  Age: 63 Year
  Sex: Male
  Weight: 84.3 kg

DRUGS (4)
  1. PANITUMUMAB [Suspect]
     Active Substance: PANITUMUMAB
     Indication: COLORECTAL CANCER
     Dosage: 560 MG, CYCLIC
     Route: 042
     Dates: start: 20140212
  2. TRAMETINIB [Suspect]
     Active Substance: TRAMETINIB
     Indication: COLORECTAL CANCER
     Dosage: 2 MG, QD
     Route: 048
     Dates: start: 20141201, end: 20141222
  3. DABRAFENIB [Suspect]
     Active Substance: DABRAFENIB
     Indication: COLORECTAL CANCER
     Dosage: 150 MG, BID
     Route: 048
     Dates: start: 20140212, end: 20150130
  4. TRAMETINIB [Suspect]
     Active Substance: TRAMETINIB
     Dosage: 1 MG, QD
     Route: 048
     Dates: start: 20150109

REACTIONS (2)
  - Urinary retention [Recovered/Resolved]
  - Constipation [Recovered/Resolved]

NARRATIVE: CASE EVENT DATE: 20150126
